FAERS Safety Report 8908201 (Version 3)
Quarter: 2012Q4

REPORT INFORMATION
  Report Type: Report from Study
  Country: JP (occurrence: JP)
  Receive Date: 20121114
  Receipt Date: 20121210
  Transmission Date: 20130627
  Serious: Yes (Hospitalization, Disabling)
  Sender: FDA-Public Use
  Company Number: PHHO2012JP016273

PATIENT
  Age: 68 Year
  Sex: Male
  Weight: 54 kg

DRUGS (8)
  1. AMN107 [Suspect]
     Indication: CHRONIC MYELOID LEUKAEMIA
     Dosage: 600 mg, QD
     Route: 048
     Dates: start: 20080215, end: 20121108
  2. AMN107 [Suspect]
     Dosage: 600 mg, QD
     Route: 048
     Dates: start: 20121109
  3. ZADITEN [Concomitant]
     Indication: CONJUNCTIVITIS
     Dosage: UNK
     Dates: start: 20080305
  4. ELTACIN [Concomitant]
     Indication: RASH
     Dosage: UNK
     Route: 061
     Dates: start: 20120402
  5. DERMOVATE [Concomitant]
     Indication: RASH
     Dosage: UNK
     Route: 061
     Dates: start: 20120402
  6. DERMOSOL [Concomitant]
     Indication: RASH
     Dosage: UNK
     Route: 061
     Dates: start: 20120402
  7. LOCOID [Concomitant]
     Indication: CONJUNCTIVITIS
     Dosage: UNK
     Route: 061
     Dates: start: 20080305
  8. ZINC OXIDE [Concomitant]
     Indication: RASH
     Dosage: UNK
     Route: 061
     Dates: start: 20120402

REACTIONS (1)
  - Cerebral infarction [Recovering/Resolving]
